FAERS Safety Report 23155151 (Version 2)
Quarter: 2023Q4

REPORT INFORMATION
  Report Type: Report from Study
  Country: CA (occurrence: CA)
  Receive Date: 20231107
  Receipt Date: 20231127
  Transmission Date: 20240109
  Serious: Yes (Other)
  Sender: FDA-Public Use
  Company Number: CA-JNJFOC-20230371716

PATIENT
  Age: 22 Year
  Sex: Female

DRUGS (1)
  1. REMICADE [Suspect]
     Active Substance: INFLIXIMAB
     Indication: Juvenile idiopathic arthritis
     Dosage: EXPIRY DATE: FEB-2026, THERAPY START DATE REPORTED AS 20-JUN-2018?V5: EXPIRY DATE: 28-FEB-2026
     Route: 041
     Dates: start: 20170626, end: 20231123

REACTIONS (10)
  - Central venous catheterisation [Unknown]
  - Skin exfoliation [Not Recovered/Not Resolved]
  - COVID-19 [Recovered/Resolved]
  - Skin infection [Not Recovered/Not Resolved]
  - Drug hypersensitivity [Unknown]
  - Ear infection [Not Recovered/Not Resolved]
  - Tympanic membrane perforation [Unknown]
  - Chest discomfort [Unknown]
  - Eczema [Not Recovered/Not Resolved]
  - Psoriasis [Not Recovered/Not Resolved]

NARRATIVE: CASE EVENT DATE: 20230101
